FAERS Safety Report 13288504 (Version 1)
Quarter: 2017Q1

REPORT INFORMATION
  Report Type: Spontaneous
  Country: FR (occurrence: FR)
  Receive Date: 20170302
  Receipt Date: 20170302
  Transmission Date: 20170428
  Serious: Yes (Other)
  Sender: FDA-Public Use
  Company Number: FR-AMGEN-FRASP2017028965

PATIENT
  Age: 73 Year
  Sex: Female

DRUGS (3)
  1. VITAMIN D [Concomitant]
     Active Substance: CHOLECALCIFEROL
  2. PROLIA [Suspect]
     Active Substance: DENOSUMAB
     Indication: PRODUCT USED FOR UNKNOWN INDICATION
     Dosage: UNK
     Route: 065
     Dates: start: 201509
  3. FIXICAL [Concomitant]
     Active Substance: CALCIUM CARBONATE
     Dosage: 500 UNK, UNK

REACTIONS (10)
  - Tendon rupture [Unknown]
  - Constipation [Not Recovered/Not Resolved]
  - Tendon pain [Unknown]
  - Spinal fracture [Unknown]
  - Pain [Unknown]
  - Nausea [Not Recovered/Not Resolved]
  - Faecaloma [Not Recovered/Not Resolved]
  - Cataract [Unknown]
  - Rash [Unknown]
  - Bone pain [Unknown]
